FAERS Safety Report 9331363 (Version 1)
Quarter: 2013Q2

REPORT INFORMATION
  Report Type: Spontaneous
  Country: US (occurrence: US)
  Receive Date: 20130605
  Receipt Date: 20130605
  Transmission Date: 20140414
  Serious: Yes (Hospitalization)
  Sender: FDA-Public Use
  Company Number: US-MYLANLABS-2013S1011656

PATIENT
  Age: 48 Year
  Sex: Male

DRUGS (8)
  1. VENLAFAXINE [Suspect]
     Indication: INTENTIONAL DRUG MISUSE
     Dosage: 450MG DAILY
     Route: 065
  2. VENLAFAXINE [Suspect]
     Indication: INTENTIONAL DRUG MISUSE
     Dosage: 600MG DAILY
     Route: 065
  3. VENLAFAXINE [Suspect]
     Indication: INTENTIONAL DRUG MISUSE
     Dosage: 300MG DAILY
     Route: 065
  4. BUPROPION [Suspect]
     Indication: INTENTIONAL DRUG MISUSE
     Dosage: 300MG DAILY
     Route: 065
  5. BUPROPION [Suspect]
     Indication: INTENTIONAL DRUG MISUSE
     Dosage: 150MG DAILY
     Route: 065
  6. CLONAZEPAM [Suspect]
     Dosage: 2MG DAILY
     Route: 065
  7. HYDROXYZINE [Concomitant]
     Dosage: 10MG THREE TIMES DAILY AS NEEDED AND 20MG AT BEDTIME
     Route: 065
  8. METOPROLOL TARTRATE [Concomitant]
     Route: 065

REACTIONS (6)
  - Psychotic disorder [Recovered/Resolved]
  - Intentional overdose [Recovered/Resolved]
  - Tremor [Unknown]
  - Hyperhidrosis [Unknown]
  - Intentional drug misuse [Unknown]
  - Intentional drug misuse [Unknown]
